FAERS Safety Report 12762189 (Version 1)
Quarter: 2016Q3

REPORT INFORMATION
  Report Type: Spontaneous
  Country: US (occurrence: US)
  Receive Date: 20160915
  Receipt Date: 20160915
  Transmission Date: 20161109
  Serious: No
  Sender: FDA-Public Use
  Company Number: None

PATIENT
  Sex: Male

DRUGS (1)
  1. REMICADE [Suspect]
     Active Substance: INFLIXIMAB
     Indication: CROHN^S DISEASE
     Dosage: 500MG EVERY 8 WEEKS INTRAVENOUSLY
     Route: 042

REACTIONS (3)
  - Arthralgia [None]
  - Myalgia [None]
  - Fatigue [None]
